FAERS Safety Report 7446094-0 (Version None)
Quarter: 2011Q2

REPORT INFORMATION
  Report Type: 
  Country: None (occurrence: None)
  Receive Date: 20110429
  Receipt Date: 20110426
  Transmission Date: 20111010
  Serious: Yes (Hospitalization)
  Sender: FDA-Public Use
  Company Number: A0775468A

PATIENT
  Age: 47 Year
  Sex: Male
  Weight: 60.9 kg

DRUGS (10)
  1. AVANDIA [Suspect]
     Dosage: 8MG PER DAY
     Route: 048
     Dates: start: 20010101, end: 20080101
  2. MICRONASE [Concomitant]
  3. ALLOPURINOL [Concomitant]
  4. BICARBONATE [Concomitant]
  5. GLIPIZIDE [Concomitant]
  6. VYTORIN [Concomitant]
  7. NORVASC [Concomitant]
  8. CARDURA [Concomitant]
  9. AVAPRO [Concomitant]
  10. COREG [Concomitant]

REACTIONS (6)
  - VASCULAR GRAFT [None]
  - BLOOD CHOLESTEROL INCREASED [None]
  - CARDIAC FAILURE CONGESTIVE [None]
  - MYOCARDIAL INFARCTION [None]
  - MYOCARDIAL ISCHAEMIA [None]
  - ISCHAEMIC CARDIOMYOPATHY [None]
